FAERS Safety Report 7318843-3 (Version None)
Quarter: 2011Q1

REPORT INFORMATION
  Report Type: 
  Country: None (occurrence: None)
  Receive Date: 20110228
  Receipt Date: 20101004
  Transmission Date: 20110831
  Serious: No
  Sender: FDA-Public Use
  Company Number: A0883561A

PATIENT
  Sex: Male

DRUGS (1)
  1. IMITREX [Suspect]
     Route: 065
     Dates: start: 20030101

REACTIONS (2)
  - MALAISE [None]
  - MIGRAINE [None]
